FAERS Safety Report 12842322 (Version 4)
Quarter: 2017Q1

REPORT INFORMATION
  Report Type: Spontaneous
  Country: US (occurrence: US)
  Receive Date: 20161013
  Receipt Date: 20170102
  Transmission Date: 20170428
  Serious: No
  Sender: FDA-Public Use
  Company Number: US-ASTRAZENECA-2016SF05771

PATIENT
  Age: 79 Year
  Sex: Female
  Weight: 61.2 kg

DRUGS (6)
  1. LIPITOR [Concomitant]
     Active Substance: ATORVASTATIN CALCIUM
     Indication: BLOOD CHOLESTEROL
     Dosage: 10.0MG UNKNOWN
     Route: 048
     Dates: start: 2006
  2. AMLODIPINE [Concomitant]
     Active Substance: AMLODIPINE BESYLATE
     Indication: HYPERTENSION
     Dosage: 5.0MG UNKNOWN
     Route: 048
     Dates: start: 2006
  3. ATENOLOL. [Suspect]
     Active Substance: ATENOLOL
     Indication: HYPERTENSION
     Route: 048
     Dates: start: 2006
  4. SYMBICORT [Suspect]
     Active Substance: BUDESONIDE\FORMOTEROL FUMARATE DIHYDRATE
     Indication: ASTHMA
     Dosage: 80/4.5 MCG, 2 PUFFS ONCE A DAY
     Route: 055
     Dates: start: 2013
  5. VENTOLIN [Concomitant]
     Active Substance: ALBUTEROL SULFATE
     Indication: ASTHMA
     Dosage: AS REQUIRED
     Route: 055
  6. PROZAC [Concomitant]
     Active Substance: FLUOXETINE HYDROCHLORIDE
     Indication: ANXIETY
     Dosage: 20.0MG UNKNOWN
     Route: 048
     Dates: start: 2006

REACTIONS (9)
  - Stenosis [Unknown]
  - Underdose [Unknown]
  - Body height decreased [Unknown]
  - Device malfunction [Unknown]
  - Dyspnoea [Unknown]
  - Intentional product misuse [Unknown]
  - Off label use [Unknown]
  - Circumstance or information capable of leading to device use error [Unknown]
  - Product use issue [Unknown]

NARRATIVE: CASE EVENT DATE: 2016
